FAERS Safety Report 6092403-7 (Version None)
Quarter: 2009Q1

REPORT INFORMATION
  Report Type: 
  Country: None (occurrence: None)
  Receive Date: 20090219
  Receipt Date: 20081202
  Transmission Date: 20090719
  Serious: No
  Sender: FDA-Public Use
  Company Number: WAES 0812USA00605

PATIENT
  Age: 63 Year
  Sex: Female

DRUGS (9)
  1. JANUVIA [Suspect]
     Indication: TYPE 2 DIABETES MELLITUS
     Dosage: PO
     Route: 048
     Dates: start: 20070601, end: 20081201
  2. INFLUENZA VIRUS VACCINE (UNSPECIFIED) UNK [Suspect]
  3. GLUCOPHAGE XR [Concomitant]
  4. GLUCOTROL [Concomitant]
  5. PREVACID [Concomitant]
  6. VASOTEC [Concomitant]
  7. ZOCOR [Concomitant]
  8. ZYRTEC [Concomitant]
  9. ALBUTEROL [Concomitant]

REACTIONS (2)
  - RASH [None]
  - URTICARIA [None]
